FAERS Safety Report 22343965 (Version 1)
Quarter: 2023Q2

REPORT INFORMATION
  Report Type: Spontaneous
  Country: US (occurrence: None)
  Receive Date: 20230518
  Receipt Date: 20230518
  Transmission Date: 20230722
  Serious: Yes (Other)
  Sender: FDA-Public Use
  Company Number: None

PATIENT
  Age: 53 Year
  Sex: Female

DRUGS (2)
  1. BOTOX [Suspect]
     Active Substance: ONABOTULINUMTOXINA
     Indication: Facial spasm
     Dosage: 100 UNIT INJECTION??PHYSICIAN TO INJECT INTO THE FACE EVERY 3 MONTHS IN THE OFFICE (IN ONE SESSION)?
     Route: 050
     Dates: start: 20200922
  2. BOTOX [Suspect]
     Active Substance: ONABOTULINUMTOXINA
     Dosage: OTHER FREQUENCY : EVERY 3 MONTHS;?OTHER ROUTE : INJECTION ;?
     Route: 050

REACTIONS (1)
  - Focal dyscognitive seizures [None]

NARRATIVE: CASE EVENT DATE: 20230509
